FAERS Safety Report 14877369 (Version 1)
Quarter: 2018Q2

REPORT INFORMATION
  Report Type: Spontaneous
  Country: US (occurrence: US)
  Receive Date: 20180510
  Receipt Date: 20180510
  Transmission Date: 20180711
  Serious: Yes (Hospitalization)
  Sender: FDA-Public Use
  Company Number: US-ACELLA PHARMACEUTICALS, LLC-2047574

PATIENT
  Age: 25 Year
  Sex: Female

DRUGS (3)
  1. LEVONORGESTREL AND ETHINYL ESTRADIOL TABLETS AND FERROUS BISGLYCINATE [Suspect]
     Active Substance: ETHINYL ESTRADIOL\LEVONORGESTREL
  2. ALPRAZOLAM. [Concomitant]
     Active Substance: ALPRAZOLAM
  3. FLUTICASONE. [Concomitant]
     Active Substance: FLUTICASONE

REACTIONS (4)
  - Abdominal pain [Recovered/Resolved]
  - Vomiting [Recovering/Resolving]
  - Nausea [Recovering/Resolving]
  - Colitis ischaemic [Recovered/Resolved]
